FAERS Safety Report 7945541-5 (Version None)
Quarter: 2011Q4

REPORT INFORMATION
  Report Type: 
  Country: None (occurrence: None)
  Receive Date: 20111125
  Receipt Date: 20111114
  Transmission Date: 20120403
  Serious: Yes (Congenital Anomaly)
  Sender: FDA-Public Use
  Company Number: 1000025693

PATIENT

DRUGS (2)
  1. CITALOPRAM HYDROBROMIDE [Suspect]
     Dosage: 20 MG (20 MG, 1 IN 1 D), TRANSPLACENTAL
     Route: 064
     Dates: start: 20100727, end: 20101203
  2. FOLIC ACID [Concomitant]

REACTIONS (7)
  - RENAL DYSPLASIA [None]
  - OLIGOHYDRAMNIOS [None]
  - CONGENITAL ANOMALY [None]
  - FOETAL EXPOSURE DURING PREGNANCY [None]
  - SYMPODIA [None]
  - ABORTION INDUCED [None]
  - AMNIOTIC FLUID VOLUME DECREASED [None]
